FAERS Safety Report 15101188 (Version 4)
Quarter: 2020Q3

REPORT INFORMATION
  Report Type: Report from Study
  Country: US (occurrence: US)
  Receive Date: 20180703
  Receipt Date: 20190711
  Transmission Date: 20201105
  Serious: Yes (Life-Threatening, Hospitalization)
  Sender: FDA-Public Use
  Company Number: US-ROCHE-1829391

PATIENT
  Age: 59 Year
  Sex: Female
  Weight: 67.1 kg

DRUGS (46)
  1. POLATUZUMAB VEDOTIN. [Suspect]
     Active Substance: POLATUZUMAB VEDOTIN
     Indication: B-CELL LYMPHOMA
     Dosage: MOST RECENT DOSE 85 MG PRIOR TO FIRST EPISODE OF PNEUMONIA ON 12/JUL/2016?MOST RECENT DOSE 85 MG PRI
     Route: 042
     Dates: start: 20160329
  2. SIMETHICONE (DIMETHICONE) [Concomitant]
     Active Substance: DIMETHICONE
     Indication: ABDOMINAL DISTENSION
     Route: 065
     Dates: start: 20160328, end: 20170411
  3. MEDROL [Concomitant]
     Active Substance: METHYLPREDNISOLONE
     Indication: PNEUMONIA
  4. IBUPROFEN. [Concomitant]
     Active Substance: IBUPROFEN
     Indication: PNEUMONIA
  5. ZOFRAN [Concomitant]
     Active Substance: ONDANSETRON HYDROCHLORIDE
     Indication: NAUSEA
     Route: 048
     Dates: start: 20160927
  6. BACTRIM DS [Concomitant]
     Active Substance: SULFAMETHOXAZOLE\TRIMETHOPRIM
     Route: 065
     Dates: start: 20161031
  7. TESSALON [Concomitant]
     Active Substance: BENZONATATE
     Indication: BRONCHITIS
     Route: 065
     Dates: start: 20170919, end: 20170925
  8. OBINUTUZUMAB. [Suspect]
     Active Substance: OBINUTUZUMAB
     Indication: B-CELL LYMPHOMA
  9. ACETAMINOPHEN. [Concomitant]
     Active Substance: ACETAMINOPHEN
     Indication: HEADACHE
     Route: 048
     Dates: start: 20160330
  10. METOPROLOL SUCCINATE. [Concomitant]
     Active Substance: METOPROLOL SUCCINATE
     Indication: CARDIOMYOPATHY
     Route: 048
     Dates: start: 20160427, end: 20161208
  11. IBUPROFEN. [Concomitant]
     Active Substance: IBUPROFEN
     Indication: ARTHRALGIA
     Dosage: 4 TABLETS
     Route: 048
     Dates: start: 20160813, end: 20160818
  12. ANORO ELLIPTA [Concomitant]
     Active Substance: UMECLIDINIUM BROMIDE\VILANTEROL TRIFENATATE
     Indication: CHRONIC OBSTRUCTIVE PULMONARY DISEASE
     Dosage: 62.5 MCG/25 MCG
     Route: 055
     Dates: start: 20160831, end: 20170919
  13. ACYCLOVIR [ACICLOVIR] [Concomitant]
     Active Substance: ACYCLOVIR
     Route: 065
     Dates: start: 20161031
  14. XYZAL [Concomitant]
     Active Substance: LEVOCETIRIZINE DIHYDROCHLORIDE
     Indication: COUGH
     Route: 065
     Dates: start: 20170818
  15. DIPHENHYDRAMINE. [Concomitant]
     Active Substance: DIPHENHYDRAMINE
     Route: 065
     Dates: start: 20170927, end: 20170927
  16. ALBUTEROL;IPRATROPIUM [Concomitant]
     Indication: BRONCHITIS
     Route: 055
     Dates: start: 20170927, end: 20170927
  17. QVAR [Concomitant]
     Active Substance: BECLOMETHASONE DIPROPIONATE
     Indication: CHRONIC OBSTRUCTIVE PULMONARY DISEASE
     Dosage: 80 MCG/ACT 2 PUFF
     Route: 065
     Dates: start: 20160623, end: 20170214
  18. MEDROL [Concomitant]
     Active Substance: METHYLPREDNISOLONE
     Indication: BRONCHITIS
     Dosage: AS DIRECTED (X 6 DAYS)
     Route: 065
     Dates: start: 20160804, end: 20160810
  19. ALBUTEROL;IPRATROPIUM [Concomitant]
     Indication: CHRONIC OBSTRUCTIVE PULMONARY DISEASE
     Dosage: 90MCG/3.0ML 2 PUFFS
     Route: 055
     Dates: start: 20150609
  20. MAGNESIUM SULFATE. [Concomitant]
     Active Substance: MAGNESIUM SULFATE
     Indication: HYPOMAGNESAEMIA
     Route: 042
     Dates: start: 20160910, end: 20160910
  21. MAGNESIUM SULFATE. [Concomitant]
     Active Substance: MAGNESIUM SULFATE
     Indication: PNEUMONIA
  22. MONTELUKAST [Concomitant]
     Active Substance: MONTELUKAST SODIUM
     Indication: CHRONIC OBSTRUCTIVE PULMONARY DISEASE
     Route: 048
     Dates: start: 20160831
  23. NASACORT AQ [Concomitant]
     Active Substance: TRIAMCINOLONE ACETONIDE
     Indication: RHINOVIRUS INFECTION
     Route: 065
     Dates: start: 20161027
  24. ZYRTEC [Concomitant]
     Active Substance: CETIRIZINE HYDROCHLORIDE
     Indication: BRONCHITIS
     Route: 048
     Dates: start: 20170508
  25. METOPROLOL. [Concomitant]
     Active Substance: METOPROLOL
     Indication: CARDIOMYOPATHY
     Route: 065
     Dates: start: 20170317
  26. DEXAMETHASONE. [Concomitant]
     Active Substance: DEXAMETHASONE
     Route: 065
     Dates: start: 20170927, end: 20170927
  27. ACETAMINOPHEN. [Concomitant]
     Active Substance: ACETAMINOPHEN
     Indication: PYREXIA
     Route: 065
     Dates: start: 20170927, end: 20170927
  28. ATIVAN [Concomitant]
     Active Substance: LORAZEPAM
     Indication: PREMEDICATION
     Route: 065
     Dates: start: 20160830, end: 20160830
  29. MONTELUKAST [Concomitant]
     Active Substance: MONTELUKAST SODIUM
     Indication: CHRONIC OBSTRUCTIVE PULMONARY DISEASE
     Route: 048
     Dates: start: 20160831
  30. ASMANEX [Concomitant]
     Active Substance: MOMETASONE FUROATE
     Indication: CHRONIC OBSTRUCTIVE PULMONARY DISEASE
     Route: 065
     Dates: start: 20170215, end: 20170919
  31. PREDNISONE. [Concomitant]
     Active Substance: PREDNISONE
     Indication: BRONCHITIS
     Route: 048
     Dates: start: 20170919, end: 20170925
  32. PANTOPRAZOLE [Concomitant]
     Active Substance: PANTOPRAZOLE
     Indication: GASTROOESOPHAGEAL REFLUX DISEASE
     Route: 065
     Dates: start: 20150209
  33. SODIUM CHLORIDE. [Concomitant]
     Active Substance: SODIUM CHLORIDE
     Dosage: CONTINUOUS
     Route: 042
     Dates: start: 20160910, end: 20160911
  34. LISINOPRIL. [Concomitant]
     Active Substance: LISINOPRIL
     Indication: CARDIOMYOPATHY
     Route: 065
     Dates: start: 20161209
  35. PREDNISONE. [Concomitant]
     Active Substance: PREDNISONE
     Dosage: CORRECTIVE TREATMENT
     Route: 065
  36. OBINUTUZUMAB. [Suspect]
     Active Substance: OBINUTUZUMAB
     Indication: B-CELL LYMPHOMA
     Dosage: MOST RECENT DOSE 1000 MG PRIOR TO FIRST EPISODE OF PNEUMONIA ON 30/AUG/2016?MOST RECENT DOSE 1000 MG
     Route: 042
     Dates: start: 20160329
  37. ACETAMINOPHEN. [Concomitant]
     Active Substance: ACETAMINOPHEN
     Indication: PNEUMONIA
  38. ZOFRAN [Concomitant]
     Active Substance: ONDANSETRON HYDROCHLORIDE
     Indication: VOMITING
  39. INCRUSE ELLIPTA [Concomitant]
     Active Substance: UMECLIDINIUM BROMIDE
     Indication: CHRONIC OBSTRUCTIVE PULMONARY DISEASE
     Dosage: 100?25MCG/INH, 1 PUFF DAILY
     Route: 055
     Dates: start: 20170919
  40. BREO ELLIPTA [Concomitant]
     Active Substance: FLUTICASONE FUROATE\VILANTEROL TRIFENATATE
     Indication: CHRONIC OBSTRUCTIVE PULMONARY DISEASE
     Dosage: INHALER 100?25MCG/INH 1 PUFF DAILY
     Route: 055
     Dates: start: 20170919
  41. CEFPROZIL. [Concomitant]
     Active Substance: CEFPROZIL
     Indication: BRONCHITIS
     Route: 065
     Dates: start: 20170919
  42. VENETOCLAX. [Suspect]
     Active Substance: VENETOCLAX
     Indication: B-CELL LYMPHOMA
     Dosage: MOST RECENT DOSE 400 MG PRIOR TO FIRST EPISODE OF PNEUMONIA ON 09/SEP/2016?MOST RECENT DOSE 100 MG P
     Route: 048
     Dates: start: 20160329
  43. POLATUZUMAB VEDOTIN. [Suspect]
     Active Substance: POLATUZUMAB VEDOTIN
     Indication: B-CELL LYMPHOMA
  44. PHENERGAN [Concomitant]
     Active Substance: PROMETHAZINE HYDROCHLORIDE
     Indication: NAUSEA
     Route: 065
     Dates: start: 20150609
  45. ATIVAN [Concomitant]
     Active Substance: LORAZEPAM
     Indication: COMPUTERISED TOMOGRAM
     Route: 048
     Dates: start: 20160823, end: 20160823
  46. MUCINEX D [Concomitant]
     Active Substance: GUAIFENESIN\PSEUDOEPHEDRINE HYDROCHLORIDE
     Indication: BRONCHITIS
     Dosage: DOSE: 60?600MG
     Route: 065
     Dates: start: 20170215

REACTIONS (4)
  - Acute respiratory failure [Recovered/Resolved]
  - Pneumonia [Recovered/Resolved]
  - Clostridium difficile colitis [Recovered/Resolved]
  - Pneumonia [Not Recovered/Not Resolved]

NARRATIVE: CASE EVENT DATE: 20160909
